FAERS Safety Report 6170304-3 (Version None)
Quarter: 2009Q2

REPORT INFORMATION
  Report Type: 
  Country: None (occurrence: None)
  Receive Date: 20090427
  Receipt Date: 20090427
  Transmission Date: 20091009
  Serious: Yes (Other)
  Sender: FDA-Public Use
  Company Number: None

PATIENT
  Sex: Female

DRUGS (1)
  1. LAMOTRIGINE [Suspect]
     Indication: MYELITIS TRANSVERSE
     Dosage: 150 MG 2-BID PO
     Route: 048
     Dates: start: 20080901

REACTIONS (3)
  - CONDITION AGGRAVATED [None]
  - NEURALGIA [None]
  - PRODUCT SUBSTITUTION ISSUE [None]
